FAERS Safety Report 4879816-3 (Version None)
Quarter: 2006Q1

REPORT INFORMATION
  Report Type: 
  Country: None (occurrence: None)
  Receive Date: 20060111
  Receipt Date: 20051228
  Transmission Date: 20060701
  Serious: Yes (Other)
  Sender: FDA-Public Use
  Company Number: 2005SP004428

PATIENT
  Age: 1 Year
  Sex: Male
  Weight: 13.1543 kg

DRUGS (4)
  1. XOPENEX [Suspect]
     Indication: NASOPHARYNGITIS
     Dosage: 0.63 MG/3ML, INHALATION
     Route: 055
     Dates: start: 20051001, end: 20051001
  2. XOPENEX [Suspect]
     Indication: WHEEZING
     Dosage: 0.63 MG/3ML, INHALATION
     Route: 055
     Dates: start: 20051001, end: 20051001
  3. XOPENEX [Suspect]
     Indication: NASOPHARYNGITIS
     Dosage: 0.63 MG/3ML, INHALATION
     Route: 055
     Dates: start: 20051201, end: 20051201
  4. XOPENEX [Suspect]
     Indication: WHEEZING
     Dosage: 0.63 MG/3ML, INHALATION
     Route: 055
     Dates: start: 20051201, end: 20051201

REACTIONS (5)
  - NASOPHARYNGITIS [None]
  - OXYGEN SATURATION DECREASED [None]
  - RASH [None]
  - URTICARIA GENERALISED [None]
  - WHEEZING [None]
